FAERS Safety Report 21901843 (Version 12)
Quarter: 2024Q4

REPORT INFORMATION
  Report Type: Report from Study
  Country: CA (occurrence: CA)
  Receive Date: 20230124
  Receipt Date: 20241220
  Transmission Date: 20250114
  Serious: Yes (Other)
  Sender: ROCHE
  Company Number: CA-ROCHE-3267373

PATIENT
  Age: 48 Year
  Sex: Male

DRUGS (6)
  1. OCREVUS [Suspect]
     Active Substance: OCRELIZUMAB
     Indication: Primary progressive multiple sclerosis
     Dosage: MORE DOSAGE INFORMATION IS 300 MG AT DAY 0 AND 14, THEN 600 MG EVERY 6 MONTH
     Route: 042
     Dates: start: 20200810
  2. SYMBICORT [Concomitant]
     Active Substance: BUDESONIDE\FORMOTEROL FUMARATE DIHYDRATE
  3. BOTOX [Concomitant]
     Active Substance: ONABOTULINUMTOXINA
  4. PANTOPRAZOLE SODIUM [Concomitant]
     Active Substance: PANTOPRAZOLE SODIUM
  5. MORPHINE [Concomitant]
     Active Substance: MORPHINE
  6. METHADONE [Concomitant]
     Active Substance: METHADONE HYDROCHLORIDE

REACTIONS (13)
  - Pneumonia [Unknown]
  - Fatigue [Not Recovered/Not Resolved]
  - Muscular weakness [Not Recovered/Not Resolved]
  - Muscle spasms [Not Recovered/Not Resolved]
  - Depression [Not Recovered/Not Resolved]
  - Therapeutic product effect decreased [Unknown]
  - Carpal tunnel syndrome [Unknown]
  - Loss of consciousness [Unknown]
  - Fall [Unknown]
  - Ligament rupture [Unknown]
  - Lower limb fracture [Unknown]
  - Road traffic accident [Unknown]
  - Fracture [Recovering/Resolving]

NARRATIVE: CASE EVENT DATE: 20221201
